FAERS Safety Report 8220222-1 (Version None)
Quarter: 2012Q1

REPORT INFORMATION
  Report Type: 
  Country: None (occurrence: None)
  Receive Date: 20120320
  Receipt Date: 20120310
  Transmission Date: 20120608
  Serious: Yes (Hospitalization)
  Sender: FDA-Public Use
  Company Number: US-BAYER-2011-034570

PATIENT
  Age: 34 Year
  Sex: Female
  Weight: 72.562 kg

DRUGS (13)
  1. LOVAZA [Concomitant]
  2. PRILOSEC [Concomitant]
  3. ALBUTEROL [Concomitant]
  4. RHINOCORT [Concomitant]
  5. YAZ [Suspect]
     Indication: ORAL CONTRACEPTION
     Dosage: UNK
     Dates: start: 20070701, end: 20090401
  6. FLOVENT [Concomitant]
  7. FEXOFENADINE [Concomitant]
     Route: 048
  8. MULTI-VITAMIN [Concomitant]
     Dosage: UNK
     Dates: start: 20061201, end: 20110901
  9. YAZ [Suspect]
     Indication: ACNE
  10. ADVAIR DISKUS 100/50 [Concomitant]
     Indication: MULTIPLE ALLERGIES
     Dosage: UNK
     Route: 045
     Dates: start: 20050101, end: 20110101
  11. ZYRTEC [Concomitant]
     Indication: MULTIPLE ALLERGIES
     Dosage: 10 MG, UNK
     Route: 048
     Dates: start: 20050101, end: 20110101
  12. ASTEPRO [Concomitant]
     Indication: MULTIPLE ALLERGIES
     Dosage: UNK
     Dates: start: 20010101, end: 20110101
  13. COENZYME Q10 [Concomitant]

REACTIONS (4)
  - ABDOMINAL PAIN [None]
  - PAIN [None]
  - CHOLELITHIASIS [None]
  - INJURY [None]
